FAERS Safety Report 20679922 (Version 4)
Quarter: 2022Q2

REPORT INFORMATION
  Report Type: Spontaneous
  Country: JP (occurrence: JP)
  Receive Date: 20220406
  Receipt Date: 20220531
  Transmission Date: 20220721
  Serious: Yes (Hospitalization)
  Sender: FDA-Public Use
  Company Number: JP-PFIZER INC-202200506342

PATIENT
  Age: 92 Year
  Sex: Female
  Weight: 39 kg

DRUGS (12)
  1. PAXLOVID [Suspect]
     Active Substance: NIRMATRELVIR\RITONAVIR
     Indication: COVID-19 treatment
     Dosage: [PF-07321332 300 MG]/[RITONAVIR 100 MG]; 2X/DAY (24MAR2022 EVENING - 26MAR2022 MORNING)
     Route: 048
     Dates: start: 20220324, end: 20220326
  2. PAXLOVID [Suspect]
     Active Substance: NIRMATRELVIR\RITONAVIR
     Dosage: [PF-07321332 150 MG]/[RITONAVIR 100 MG]; 2X/DAY (26MAR2022 EVENING - 28MAR2022 MORNING)
     Route: 048
     Dates: start: 20220326, end: 20220328
  3. TELMISARTAN [Concomitant]
     Active Substance: TELMISARTAN
     Dosage: 40 MG, 1X/DAY
     Route: 048
  4. AMLODIPINE [Concomitant]
     Active Substance: AMLODIPINE BESYLATE
     Dosage: 5 MG, 1X/DAY
     Route: 048
  5. INDAPAMIDE [Concomitant]
     Active Substance: INDAPAMIDE
     Dosage: 1 MG, 1X/DAY
     Route: 048
  6. TOFISOPAM [Concomitant]
     Active Substance: TOFISOPAM
     Dosage: 50 MG, 1X/DAY
     Route: 048
  7. CALCIUM L-ASPARTATE [Concomitant]
     Dosage: 200 MG, 1X/DAY
     Route: 048
  8. ALFACALCIDOL [Concomitant]
     Active Substance: ALFACALCIDOL
     Dosage: 1.0 UG, 1X/DAY
     Route: 048
  9. MENATETRENONE [Concomitant]
     Active Substance: MENATETRENONE
     Dosage: 15 MG, 3X/DAY
     Route: 048
  10. BROTIZOLAM [Concomitant]
     Active Substance: BROTIZOLAM
     Dosage: 0.125 MG(AS REPORTED), 1X/DAY
     Route: 048
  11. CALONAL [Concomitant]
     Active Substance: ACETAMINOPHEN
     Dosage: 500 MG, AS NEEDED
     Route: 048
  12. SENNOSIDES A AND B [Concomitant]
     Active Substance: SENNOSIDES A AND B
     Dosage: 24 MG, AS NEEDED
     Route: 048

REACTIONS (4)
  - Glomerular filtration rate decreased [Unknown]
  - Blood urea increased [Unknown]
  - Product use issue [Unknown]
  - Off label use [Unknown]

NARRATIVE: CASE EVENT DATE: 20220301
